FAERS Safety Report 11119113 (Version 1)
Quarter: 2015Q2

REPORT INFORMATION
  Report Type: Spontaneous
  Country: US (occurrence: US)
  Receive Date: 20150518
  Receipt Date: 20150518
  Transmission Date: 20150821
  Serious: No
  Sender: FDA-Public Use
  Company Number: US-AMGEN-USASP2015045727

PATIENT
  Age: 49 Year
  Sex: Male

DRUGS (6)
  1. ENBREL [Suspect]
     Active Substance: ETANERCEPT
     Indication: RHEUMATOID ARTHRITIS
     Dosage: 50 MG, QWK
     Route: 065
     Dates: start: 20070301
  2. METHOTREXATE [Concomitant]
     Active Substance: METHOTREXATE
     Dosage: UNK
  3. CLARITIN [Concomitant]
     Active Substance: LORATADINE
     Indication: SINUSITIS
  4. CLARITIN [Concomitant]
     Active Substance: LORATADINE
     Indication: EYE DISCHARGE
  5. CLARITIN [Concomitant]
     Active Substance: LORATADINE
     Indication: RHINORRHOEA
  6. CLARITIN [Concomitant]
     Active Substance: LORATADINE
     Indication: HYPERSENSITIVITY
     Dosage: UNK UNK, BID

REACTIONS (17)
  - Swollen tongue [Recovered/Resolved]
  - Bedridden [Recovered/Resolved]
  - Drug effect decreased [Unknown]
  - Sinusitis [Not Recovered/Not Resolved]
  - Tongue injury [Recovered/Resolved]
  - Dyspnoea [Recovered/Resolved]
  - Pain [Recovered/Resolved]
  - Eye discharge [Not Recovered/Not Resolved]
  - Feeling abnormal [Not Recovered/Not Resolved]
  - Musculoskeletal disorder [Recovered/Resolved]
  - Bronchitis [Not Recovered/Not Resolved]
  - Secretion discharge [Recovered/Resolved]
  - Head discomfort [Recovered/Resolved]
  - Gait disturbance [Recovered/Resolved]
  - Rhinorrhoea [Not Recovered/Not Resolved]
  - Malaise [Recovered/Resolved]
  - Nasal discharge discolouration [Recovered/Resolved]

NARRATIVE: CASE EVENT DATE: 2007
